FAERS Safety Report 9843858 (Version 1)
Quarter: 2013Q4

REPORT INFORMATION
  Report Type: Spontaneous
  Country: US (occurrence: None)
  Receive Date: 20131223
  Receipt Date: 20131223
  Transmission Date: 20140711
  Serious: Yes (Other)
  Sender: FDA-Public Use
  Company Number: 1000051735

PATIENT
  Age: 71 Year
  Sex: Female

DRUGS (4)
  1. LINZESS [Suspect]
     Indication: IRRITABLE BOWEL SYNDROME
     Dosage: 290 MCG (290 MCG, 1 IN 1 D), ORAL
     Route: 048
     Dates: start: 20131121
  2. BENTYL (DICYCLOVERINE HYDROCHLORIDE) (DICYCLOVERINE HYDROCHLORIDE) [Concomitant]
  3. CALCIUM (CALCIUM) (CALCIUM) [Concomitant]
  4. ASPIRIN (ACETYLSALICYLIC ACID) (ACETYLSALICYLIC ACID) [Concomitant]

REACTIONS (1)
  - Diarrhoea [None]
